FAERS Safety Report 21968546 (Version 1)
Quarter: 2023Q1

REPORT INFORMATION
  Report Type: Spontaneous
  Country: AE (occurrence: AE)
  Receive Date: 20230208
  Receipt Date: 20230208
  Transmission Date: 20230418
  Serious: Yes (Hospitalization)
  Sender: FDA-Public Use
  Company Number: AE-VERTEX PHARMACEUTICALS-2023-001748

PATIENT
  Age: 26 Year
  Sex: Female

DRUGS (1)
  1. TRIKAFTA [Suspect]
     Active Substance: ELEXACAFTOR\IVACAFTOR\TEZACAFTOR
     Indication: Cystic fibrosis
     Dosage: RECOMMENDED DOSE (TWICE PER DAY)
     Route: 048

REACTIONS (2)
  - Rash [Unknown]
  - Infective pulmonary exacerbation of cystic fibrosis [Unknown]
